FAERS Safety Report 9483453 (Version 1)
Quarter: 2013Q3

REPORT INFORMATION
  Report Type: Spontaneous
  Country: US (occurrence: US)
  Receive Date: 20130828
  Receipt Date: 20130828
  Transmission Date: 20140515
  Serious: Yes (Hospitalization, Other)
  Sender: FDA-Public Use
  Company Number: US-AMGEN-KDL269651

PATIENT
  Age: 50 Year
  Sex: Female

DRUGS (11)
  1. PROCRIT [Suspect]
     Indication: RENAL FAILURE CHRONIC
     Dosage: 40000 IU, QWK
     Route: 065
     Dates: start: 200708
  2. INSULIN GLARGINE [Concomitant]
     Dosage: UNK UNK, QD
  3. LEVOTHRYROXINE SODIUM [Concomitant]
     Dosage: 125 MG, QD
  4. IRBESARTAN [Concomitant]
     Dosage: 300 MG, QD
  5. FUROSEMIDE [Concomitant]
     Dosage: 40 MG, BID
  6. ATORVASTATIN CALCIUM [Concomitant]
     Dosage: UNK UNK, QD
  7. TOPROL XL [Concomitant]
     Dosage: 125 MG, QD
  8. SPIRONOLACTONE [Concomitant]
     Dosage: 25 MG, QD
  9. ACETYLSALICYLIC ACID [Concomitant]
     Dosage: 81 MG, QD
  10. HYDROCHLOROTHIAZIDE [Concomitant]
     Dosage: 100 MG, TID
  11. OSCAL [Concomitant]
     Dosage: 500 MG, BID

REACTIONS (3)
  - Hospitalisation [Unknown]
  - Cardiac failure congestive [Unknown]
  - Hypertension [Unknown]
